FAERS Safety Report 4893407-X (Version None)
Quarter: 2006Q1

REPORT INFORMATION
  Report Type: 
  Country: None (occurrence: None)
  Receive Date: 20060127
  Receipt Date: 20060118
  Transmission Date: 20060701
  Serious: Yes (Death)
  Sender: FDA-Public Use
  Company Number: US-BRISTOL-MYERS SQUIBB COMPANY-13250436

PATIENT
  Age: 86 Year
  Sex: Female
  Weight: 77 kg

DRUGS (7)
  1. COUMADIN [Suspect]
     Indication: THROMBOSIS
  2. DIOVAN [Concomitant]
  3. PRINIVIL [Concomitant]
  4. METOPROLOL [Concomitant]
  5. LABETALOL HCL [Concomitant]
  6. LASIX [Concomitant]
  7. DIGOXIN [Concomitant]

REACTIONS (2)
  - CARDIAC FAILURE CONGESTIVE [None]
  - MYOCARDIAL INFARCTION [None]
